FAERS Safety Report 11794123 (Version 1)
Quarter: 2015Q4

REPORT INFORMATION
  Report Type: Spontaneous
  Country: KR (occurrence: KR)
  Receive Date: 20151202
  Receipt Date: 20151202
  Transmission Date: 20160305
  Serious: Yes (Other)
  Sender: FDA-Public Use
  Company Number: KR-HQ SPECIALTY-KR-2015INT000655

PATIENT

DRUGS (2)
  1. DOXORUBICIN [Suspect]
     Active Substance: DOXORUBICIN
     Indication: ADENOID CYSTIC CARCINOMA
     Dosage: 25 MG/M2, FOR 3 DAYS EVERY 21 DAYS
     Route: 042
  2. CISPLATIN. [Suspect]
     Active Substance: CISPLATIN
     Indication: ADENOID CYSTIC CARCINOMA
     Dosage: 80 MG/M2, ON DAY 1 EVERY 21 DAYS
     Route: 013

REACTIONS (8)
  - Hypoaesthesia [Unknown]
  - Neutropenia [Unknown]
  - Necrosis [Recovered/Resolved]
  - Mouth ulceration [Unknown]
  - VIIth nerve paralysis [Not Recovered/Not Resolved]
  - Alopecia [Unknown]
  - Asthenia [Unknown]
  - Gingivitis [Unknown]
